FAERS Safety Report 16339815 (Version 3)
Quarter: 2019Q3

REPORT INFORMATION
  Report Type: Report from Study
  Country: US (occurrence: US)
  Receive Date: 20190521
  Receipt Date: 20190702
  Transmission Date: 20191004
  Serious: Yes (Death, Hospitalization)
  Sender: FDA-Public Use
  Company Number: US-ACTELION-A-NJ2019-190651

PATIENT
  Sex: Female

DRUGS (2)
  1. OPSUMIT [Suspect]
     Active Substance: MACITENTAN
     Indication: PRODUCT USED FOR UNKNOWN INDICATION
     Dosage: 10 MG, QD
     Route: 048
     Dates: start: 201905, end: 20190510
  2. ORENITRAM [Concomitant]
     Active Substance: TREPROSTINIL
     Dosage: 0.125 MG, BID
     Dates: start: 201905, end: 20190510

REACTIONS (5)
  - Fall [Not Recovered/Not Resolved]
  - Chronic respiratory failure [Fatal]
  - Cardiac failure congestive [Fatal]
  - Hospitalisation [Unknown]
  - Pulmonary hypertension [Fatal]
